FAERS Safety Report 4602592-6 (Version None)
Quarter: 2005Q1

REPORT INFORMATION
  Report Type: 
  Country: None (occurrence: None)
  Receive Date: 20050307
  Receipt Date: 20050222
  Transmission Date: 20050727
  Serious: Yes (Other)
  Sender: FDA-Public Use
  Company Number: 2005011176

PATIENT
  Age: 56 Year
  Sex: Female
  Weight: 83.0083 kg

DRUGS (2)
  1. PROCARDIA XL [Suspect]
     Indication: HYPERTENSION
     Dosage: 30 MG (30 MG, DAILY), ORAL
     Route: 048
  2. ALDACTAZIDE [Suspect]
     Indication: HYPERTENSION
     Dates: start: 19730101

REACTIONS (10)
  - ARTHROPATHY [None]
  - EXOSTOSIS [None]
  - HYPOKINESIA [None]
  - INTERVERTEBRAL DISC DISORDER [None]
  - INTERVERTEBRAL DISC PROTRUSION [None]
  - INTERVERTEBRAL DISC SPACE NARROWING [None]
  - JOINT LOCK [None]
  - OSTEOARTHRITIS [None]
  - PAIN [None]
  - ROAD TRAFFIC ACCIDENT [None]
